FAERS Safety Report 4476624-2 (Version None)
Quarter: 2004Q4

REPORT INFORMATION
  Report Type: 
  Country: None (occurrence: None)
  Receive Date: 20041015
  Receipt Date: 20041015
  Transmission Date: 20050328
  Serious: Yes (Hospitalization)
  Sender: FDA-Public Use
  Company Number: None

PATIENT
  Age: 45 Year
  Sex: Female
  Weight: 86 kg

DRUGS (1)
  1. NAFCILLIN SODIUM [Suspect]
     Dosage: 2 GM   Q4 HOURS   INTRAVENOU
     Route: 042
     Dates: start: 20040827, end: 20040828

REACTIONS (2)
  - NEPHRITIS INTERSTITIAL [None]
  - NEPHROGENIC DIABETES INSIPIDUS [None]
